FAERS Safety Report 13802589 (Version 1)
Quarter: 2017Q3

REPORT INFORMATION
  Report Type: Spontaneous
  Country: US (occurrence: US)
  Receive Date: 20170728
  Receipt Date: 20170728
  Transmission Date: 20171127
  Serious: No
  Sender: FDA-Public Use
  Company Number: US-PERRIGO-16US017415

PATIENT
  Age: 60 Year
  Sex: Male
  Weight: 86.17 kg

DRUGS (2)
  1. MINOXIDIL. [Suspect]
     Active Substance: MINOXIDIL
     Indication: ALOPECIA
     Dosage: 1 ML, BID
     Route: 061
     Dates: start: 20160613, end: 20160621
  2. AMLODIPINE BESYLATE. [Concomitant]
     Active Substance: AMLODIPINE BESYLATE
     Indication: HYPERTENSION
     Dosage: UNK
     Route: 065
     Dates: start: 2015

REACTIONS (6)
  - Application site irritation [Recovering/Resolving]
  - Application site pruritus [Recovered/Resolved]
  - Drug administered at inappropriate site [Recovered/Resolved]
  - Hypersensitivity [Recovering/Resolving]
  - Application site erythema [Recovering/Resolving]
  - Application site papules [Recovering/Resolving]

NARRATIVE: CASE EVENT DATE: 20160616
